FAERS Safety Report 9607885 (Version 1)
Quarter: 2013Q4

REPORT INFORMATION
  Report Type: Spontaneous
  Country: US (occurrence: US)
  Receive Date: 20131009
  Receipt Date: 20131009
  Transmission Date: 20140711
  Serious: No
  Sender: FDA-Public Use
  Company Number: US-009507513-1310USA002621

PATIENT
  Age: 19 Year
  Sex: Female

DRUGS (2)
  1. NEXPLANON [Suspect]
     Indication: CONTRACEPTION
     Dosage: 1 SUBDERMAL IMPLANT
     Route: 059
     Dates: start: 20131003
  2. PRINIVIL [Concomitant]
     Route: 048

REACTIONS (1)
  - Implant site pain [Not Recovered/Not Resolved]
